FAERS Safety Report 16170736 (Version 1)
Quarter: 2019Q2

REPORT INFORMATION
  Report Type: Spontaneous
  Country: US (occurrence: US)
  Receive Date: 20190408
  Receipt Date: 20190408
  Transmission Date: 20190711
  Serious: No
  Sender: FDA-Public Use
  Company Number: US-BIOGEN-2019BI00690602

PATIENT
  Sex: Female

DRUGS (2)
  1. MODAFINIL. [Concomitant]
     Active Substance: MODAFINIL
     Route: 050
  2. TECFIDERA [Suspect]
     Active Substance: DIMETHYL FUMARATE
     Indication: MULTIPLE SCLEROSIS
     Route: 050
     Dates: start: 20181031

REACTIONS (5)
  - Nausea [Not Recovered/Not Resolved]
  - Diarrhoea [Not Recovered/Not Resolved]
  - Product dose omission [Unknown]
  - Flushing [Not Recovered/Not Resolved]
  - Abdominal pain [Not Recovered/Not Resolved]
